FAERS Safety Report 23964444 (Version 1)
Quarter: 2024Q2

REPORT INFORMATION
  Report Type: Spontaneous
  Country: US (occurrence: US)
  Receive Date: 20240611
  Receipt Date: 20240611
  Transmission Date: 20240716
  Serious: No
  Sender: FDA-Public Use
  Company Number: US-RIGEL Pharmaceuticals, INC-2023FOS001009

PATIENT
  Sex: Female
  Weight: 43.991 kg

DRUGS (5)
  1. TAVALISSE [Suspect]
     Active Substance: FOSTAMATINIB
     Indication: Immune thrombocytopenia
     Dosage: 100 MG, BID
     Route: 048
     Dates: start: 20221115
  2. TAVALISSE [Suspect]
     Active Substance: FOSTAMATINIB
     Dosage: 50 MG, TWICE A WEEK
     Route: 048
  3. DOPTELET [Concomitant]
     Active Substance: AVATROMBOPAG MALEATE
     Indication: Product used for unknown indication
     Dosage: 20 MG, UNK
  4. GLICLAZIDE [Concomitant]
     Active Substance: GLICLAZIDE
     Indication: Product used for unknown indication
     Dosage: 10 MG, UNK
  5. METOPROLOL [Concomitant]
     Active Substance: METOPROLOL
     Indication: Palpitations
     Dosage: 25 MG, PRN

REACTIONS (8)
  - Platelet count [Unknown]
  - Palpitations [Unknown]
  - Weight decreased [Unknown]
  - Illness [Unknown]
  - Dairy intolerance [Unknown]
  - Product prescribing issue [Unknown]
  - Diarrhoea [Not Recovered/Not Resolved]
  - Abdominal discomfort [Unknown]
